FAERS Safety Report 25232221 (Version 1)
Quarter: 2025Q2

REPORT INFORMATION
  Report Type: Spontaneous
  Country: US (occurrence: US)
  Receive Date: 20250423
  Receipt Date: 20250423
  Transmission Date: 20250716
  Serious: Yes (Other)
  Sender: MALLINCKRODT
  Company Number: US-MALLINCKRODT-MNK202502027

PATIENT
  Age: 61 Year
  Sex: Male
  Weight: 209 kg

DRUGS (4)
  1. CORTICOTROPIN [Suspect]
     Active Substance: CORTICOTROPIN
     Indication: Rheumatoid arthritis
     Dosage: 80 UNITS
     Route: 058
  2. CORTICOTROPIN [Suspect]
     Active Substance: CORTICOTROPIN
  3. CORTICOTROPIN [Suspect]
     Active Substance: CORTICOTROPIN
  4. RINVOQ [Concomitant]
     Active Substance: UPADACITINIB

REACTIONS (3)
  - Ileostomy [Unknown]
  - Urinary tract infection [Unknown]
  - Agitation [Unknown]

NARRATIVE: CASE EVENT DATE: 20250201
